FAERS Safety Report 4575440-0 (Version None)
Quarter: 2005Q1

REPORT INFORMATION
  Report Type: 
  Country: None (occurrence: None)
  Receive Date: 20050128
  Receipt Date: 20050128
  Transmission Date: 20050727
  Serious: Yes (Hospitalization)
  Sender: FDA-Public Use
  Company Number: None

PATIENT
  Age: 16 Year
  Sex: Female
  Weight: 65.7716 kg

DRUGS (5)
  1. ACCUTANE [Suspect]
     Indication: ACNE
     Dosage: 1ST DOSE
     Dates: start: 20050119
  2. BIRTH CONTROL [Concomitant]
  3. MINOCYCLINE HCL [Concomitant]
  4. TAZORAC [Concomitant]
  5. BENZACLINE [Concomitant]

REACTIONS (6)
  - ABDOMINAL PAIN UPPER [None]
  - FEELING ABNORMAL [None]
  - HEAD INJURY [None]
  - HEADACHE [None]
  - SYNCOPE [None]
  - VOMITING [None]
